FAERS Safety Report 6444679-1 (Version None)
Quarter: 2009Q4

REPORT INFORMATION
  Report Type: 
  Country: None (occurrence: None)
  Receive Date: 20091116
  Receipt Date: 20091116
  Transmission Date: 20100525
  Serious: Yes (Other)
  Sender: FDA-Public Use
  Company Number: None

PATIENT
  Sex: Female

DRUGS (1)
  1. IBUPROFEN [Suspect]
     Indication: NEUROPATHY PERIPHERAL
     Dosage: 800 MG EVERY 8 HOURS ORAL
     Route: 048

REACTIONS (4)
  - ABDOMINAL DISCOMFORT [None]
  - HEADACHE [None]
  - NEUROPATHY PERIPHERAL [None]
  - PRODUCT SUBSTITUTION ISSUE [None]
